FAERS Safety Report 8131440 (Version 2)
Quarter: 2012Q4

REPORT INFORMATION
  Report Type: 
  Country: IT (occurrence: IT)
  Receive Date: 20110912
  Receipt Date: 20121015
  Transmission Date: 20130627
  Serious: Yes (Other)
  Sender: FDA-Public Use
  Company Number: IT-GLAXOSMITHKLINE-B0745920A

PATIENT
  Age: 52 Year
  Sex: Female

DRUGS (2)
  1. TYVERB [Suspect]
     Indication: BREAST CANCER METASTATIC
     Dosage: 1250MG per day
     Route: 048
     Dates: start: 20110531, end: 20110805
  2. XELODA [Concomitant]
     Dosage: 3650MG per day
     Route: 048
     Dates: start: 20110531, end: 20110805

REACTIONS (1)
  - Aphasia [Recovered/Resolved]
